FAERS Safety Report 20631704 (Version 4)
Quarter: 2022Q2

REPORT INFORMATION
  Report Type: Spontaneous
  Country: US (occurrence: None)
  Receive Date: 20220324
  Receipt Date: 20220506
  Transmission Date: 20220721
  Serious: No
  Sender: FDA-Public Use
  Company Number: 2022A091182

PATIENT
  Age: 80 Year
  Sex: Female
  Weight: 53.5 kg

DRUGS (3)
  1. SYMBICORT [Suspect]
     Active Substance: BUDESONIDE\FORMOTEROL FUMARATE DIHYDRATE
     Indication: Chronic obstructive pulmonary disease
     Dosage: 160/4.5 MG, 2 INHALATIONS , TWO TIMES A DAY,
     Route: 055
     Dates: start: 202107, end: 202111
  2. BUDESONIDE\FORMOTEROL\GLYCOPYRRONIUM [Suspect]
     Active Substance: BUDESONIDE\FORMOTEROL\GLYCOPYRRONIUM
     Indication: Chronic obstructive pulmonary disease
     Dosage: 160MCG/9/MCG/4.8MCG , 2 INHALATIONS ,TWO TIMES A DAY,
     Route: 055
     Dates: start: 202111, end: 202201
  3. COVID-19 BOOSTER [Concomitant]
     Indication: COVID-19
     Dates: start: 20211015

REACTIONS (6)
  - Inflammation [Unknown]
  - Nodule [Unknown]
  - Dysphonia [Unknown]
  - Oropharyngeal pain [Unknown]
  - Off label use [Unknown]
  - Product quality issue [Unknown]
